FAERS Safety Report 4465710-9 (Version None)
Quarter: 2004Q4

REPORT INFORMATION
  Report Type: 
  Country: None (occurrence: None)
  Receive Date: 20041004
  Receipt Date: 20040926
  Transmission Date: 20050328
  Serious: Yes (Hospitalization)
  Sender: FDA-Public Use
  Company Number: EG-MERCK-0409USA02114

PATIENT
  Age: 72 Year
  Sex: Male
  Weight: 70 kg

DRUGS (3)
  1. LORNOXICAM [Suspect]
     Indication: BACK PAIN
     Route: 048
     Dates: start: 20040917, end: 20040924
  2. VIOXX [Suspect]
     Indication: BACK PAIN
     Route: 048
     Dates: start: 20040917, end: 20040924
  3. MYOLASTAN [Concomitant]
     Indication: BACK PAIN
     Route: 065
     Dates: start: 20040917, end: 20040924

REACTIONS (1)
  - MYOCARDIAL INFARCTION [None]
